FAERS Safety Report 5017450-5 (Version None)
Quarter: 2006Q2

REPORT INFORMATION
  Report Type: 
  Country: None (occurrence: None)
  Receive Date: 20060601
  Receipt Date: 20060601
  Transmission Date: 20061013
  Serious: Yes (Hospitalization)
  Sender: FDA-Public Use
  Company Number: None

PATIENT
  Age: 26 Year
  Sex: Male
  Weight: 108.8633 kg

DRUGS (1)
  1. TOPAMAX [Suspect]
     Indication: EPILEPSY
     Dosage: 75 MG BID PO
     Route: 048
     Dates: start: 20050705

REACTIONS (3)
  - BILE DUCT OBSTRUCTION [None]
  - CHOLELITHIASIS [None]
  - PARAESTHESIA [None]
